FAERS Safety Report 19188998 (Version 1)
Quarter: 2021Q2

REPORT INFORMATION
  Report Type: Spontaneous
  Country: US (occurrence: US)
  Receive Date: 20210427
  Receipt Date: 20210427
  Transmission Date: 20210717
  Serious: Yes (Disabling)
  Sender: FDA-Public Use
  Company Number: None

PATIENT
  Age: 31 Year
  Weight: 69.75 kg

DRUGS (6)
  1. TESTOSTERONE. [Concomitant]
     Active Substance: TESTOSTERONE
  2. ESCITALOPRAM [Suspect]
     Active Substance: ESCITALOPRAM OXALATE
     Indication: ANXIETY
     Dosage: ?          QUANTITY:1 TABLET(S);?
     Route: 048
     Dates: start: 20190930, end: 20200704
  3. ESTRADIOL. [Concomitant]
     Active Substance: ESTRADIOL
  4. NORLYDA [Concomitant]
     Active Substance: NORETHINDRONE
  5. EMTRICITABINE [Concomitant]
     Active Substance: EMTRICITABINE
  6. VITAMIN D [Concomitant]
     Active Substance: VITAMIN D NOS

REACTIONS (7)
  - Hypoaesthesia [None]
  - Adjustment disorder with depressed mood [None]
  - Loss of libido [None]
  - Sexual dysfunction [None]
  - Persistent genital arousal disorder [None]
  - Suicidal ideation [None]
  - Anger [None]

NARRATIVE: CASE EVENT DATE: 20200704
